FAERS Safety Report 24432336 (Version 1)
Quarter: 2024Q4

REPORT INFORMATION
  Report Type: Spontaneous
  Country: DE (occurrence: DE)
  Receive Date: 20241014
  Receipt Date: 20241014
  Transmission Date: 20250115
  Serious: Yes (Other)
  Sender: CELLTRION
  Company Number: DE-JNJFOC-20240163245

PATIENT

DRUGS (5)
  1. INFLIXIMAB [Suspect]
     Active Substance: INFLIXIMAB
     Indication: Product used for unknown indication
  2. STELARA [Suspect]
     Active Substance: USTEKINUMAB
     Indication: Inflammatory bowel disease
     Dosage: UNK
     Route: 058
     Dates: start: 201706
  3. RISANKIZUMAB [Concomitant]
     Active Substance: RISANKIZUMAB
     Dosage: UNK
     Dates: start: 202310
  4. MATRIX [IBUPROFEN] [Concomitant]
     Dosage: 3 COURSES MATRIX
     Dates: start: 202307
  5. BUDESONIDE [Concomitant]
     Active Substance: BUDESONIDE

REACTIONS (5)
  - Diffuse large B-cell lymphoma [Unknown]
  - Crohn^s disease [Unknown]
  - Renal failure [Unknown]
  - Female genital tract fistula [Unknown]
  - Headache [Unknown]

NARRATIVE: CASE EVENT DATE: 20220501
